FAERS Safety Report 10329898 (Version 1)
Quarter: 2014Q3

REPORT INFORMATION
  Report Type: Spontaneous
  Country: US (occurrence: US)
  Receive Date: 20140721
  Receipt Date: 20140721
  Transmission Date: 20150326
  Serious: Yes (Hospitalization)
  Sender: FDA-Public Use
  Company Number: US-GLAXOSMITHKLINE-A1081084A

PATIENT
  Age: 59 Year
  Sex: Female

DRUGS (2)
  1. LOVAZA [Suspect]
     Active Substance: OMEGA-3-ACID ETHYL ESTERS
     Indication: BLOOD TRIGLYCERIDES INCREASED
     Dosage: 1CAP FOUR TIMES PER DAY
     Route: 048
  2. ADVAIR HFA [Suspect]
     Active Substance: FLUTICASONE PROPIONATE\SALMETEROL XINAFOATE
     Indication: ASTHMA
     Dosage: 1PUFF TWICE PER DAY
     Route: 055

REACTIONS (10)
  - Renal failure [Unknown]
  - Kidney infection [Not Recovered/Not Resolved]
  - Malaise [Unknown]
  - Sepsis [Unknown]
  - Urinary tract infection [Not Recovered/Not Resolved]
  - Amnesia [Not Recovered/Not Resolved]
  - Cystitis [Unknown]
  - Fatigue [Unknown]
  - Memory impairment [Unknown]
  - Renal pain [Unknown]

NARRATIVE: CASE EVENT DATE: 2013
